FAERS Safety Report 24130672 (Version 1)
Quarter: 2024Q3

REPORT INFORMATION
  Report Type: Other
  Country: CA (occurrence: CA)
  Receive Date: 20240724
  Receipt Date: 20240724
  Transmission Date: 20241017
  Serious: Yes (Hospitalization, Other)
  Sender: APOTEX
  Company Number: CA-APOTEX-2024AP008469

PATIENT
  Age: 34 Year
  Sex: Female
  Weight: 71 kg

DRUGS (1)
  1. IMATINIB [Suspect]
     Active Substance: IMATINIB
     Indication: Gastrointestinal stromal tumour
     Dosage: 400 MILLIGRAM, BID
     Route: 048

REACTIONS (4)
  - Recurrent cancer [Not Recovered/Not Resolved]
  - Memory impairment [Not Recovered/Not Resolved]
  - Nausea [Not Recovered/Not Resolved]
  - Vomiting [Not Recovered/Not Resolved]
